FAERS Safety Report 12237149 (Version 1)
Quarter: 2016Q2

REPORT INFORMATION
  Report Type: Spontaneous
  Country: US (occurrence: None)
  Receive Date: 20160404
  Receipt Date: 20160404
  Transmission Date: 20160815
  Serious: Yes (Other)
  Sender: FDA-Public Use
  Company Number: None

PATIENT
  Age: 50 Year
  Sex: Male
  Weight: 149.69 kg

DRUGS (20)
  1. VOLTARIN GEL [Concomitant]
  2. TOUJEO INSULIN [Concomitant]
  3. GLIMEPIRIDE, 4 MG GENERIC I THINK [Suspect]
     Active Substance: GLIMEPIRIDE
     Indication: TYPE 2 DIABETES MELLITUS
     Dosage: 1 TABLET(S) ONCE A DAY TAKEN BY MOUTH
     Route: 048
     Dates: start: 20160304, end: 20160324
  4. METFORMINE [Suspect]
     Active Substance: METFORMIN HYDROCHLORIDE
  5. NEVANAC [Concomitant]
     Active Substance: NEPAFENAC
  6. SYSTANE ULTRA LUBRICATING EYE DROPS [Concomitant]
  7. POTASSIUM CHLORIDE. [Concomitant]
     Active Substance: POTASSIUM CHLORIDE
  8. LATANPROST [Concomitant]
  9. TIMOLOL. [Concomitant]
     Active Substance: TIMOLOL
  10. VICODIN [Concomitant]
     Active Substance: ACETAMINOPHEN\HYDROCODONE BITARTRATE
  11. LOTEMAX [Concomitant]
     Active Substance: LOTEPREDNOL ETABONATE
  12. ASPIRIN. [Concomitant]
     Active Substance: ASPIRIN
  13. SAME CLUB 50+ MULTI VITAMIN [Concomitant]
  14. DILTIAZEM HYDROCHLORIDE EXTENDED RELEASE [Concomitant]
     Active Substance: DILTIAZEM HYDROCHLORIDE
  15. GLIPIZIIDE, 10 MG [Suspect]
     Active Substance: GLIPIZIDE
     Indication: TYPE 2 DIABETES MELLITUS
     Dosage: 1 TABLET(S) ONCE A DAY TAKEN BY MOUTH
     Route: 048
     Dates: start: 20160202, end: 20160303
  16. BACLOFIN [Concomitant]
  17. VITAMIN E [Concomitant]
     Active Substance: .ALPHA.-TOCOPHEROL
  18. BUMETENIDE [Concomitant]
  19. CARVEDILOL. [Concomitant]
     Active Substance: CARVEDILOL
  20. KRILL OIL [Concomitant]
     Active Substance: DIETARY SUPPLEMENT

REACTIONS (5)
  - Skin discolouration [None]
  - Dysuria [None]
  - Erythema [None]
  - Peripheral swelling [None]
  - Gynaecomastia [None]

NARRATIVE: CASE EVENT DATE: 20160305
